FAERS Safety Report 11430562 (Version 1)
Quarter: 2015Q3

REPORT INFORMATION
  Report Type: Spontaneous
  Country: US (occurrence: US)
  Receive Date: 20150828
  Receipt Date: 20150828
  Transmission Date: 20151125
  Serious: No
  Sender: FDA-Public Use
  Company Number: US-ROCHE-1201257

PATIENT
  Sex: Female

DRUGS (3)
  1. TELAPREVIR [Suspect]
     Active Substance: TELAPREVIR
     Indication: CHRONIC HEPATITIS C
     Route: 065
     Dates: start: 20120917, end: 20121210
  2. PEGASYS [Suspect]
     Active Substance: PEGINTERFERON ALFA-2A
     Indication: CHRONIC HEPATITIS C
     Route: 058
     Dates: start: 20120917
  3. COPEGUS [Suspect]
     Active Substance: RIBAVIRIN
     Indication: CHRONIC HEPATITIS C
     Dosage: IN DIVIDED DOSES ORALLY
     Route: 048
     Dates: start: 20120917

REACTIONS (11)
  - Skin ulcer [Unknown]
  - Rash [Recovering/Resolving]
  - Skin exfoliation [Unknown]
  - Pruritus [Unknown]
  - Orbital oedema [Unknown]
  - Injection site reaction [Unknown]
  - White blood cell count decreased [Unknown]
  - Ovarian cyst [Unknown]
  - Skin burning sensation [Unknown]
  - Urticaria [Recovering/Resolving]
  - Pelvic pain [Unknown]
